FAERS Safety Report 6728176-1 (Version None)
Quarter: 2010Q2

REPORT INFORMATION
  Report Type: 
  Country: None (occurrence: None)
  Receive Date: 20100517
  Receipt Date: 20100308
  Transmission Date: 20101027
  Serious: Yes (Hospitalization)
  Sender: FDA-Public Use
  Company Number: B0626294A

PATIENT
  Sex: Male
  Weight: 68.5 kg

DRUGS (2)
  1. BLINDED TRIAL MEDICATION [Suspect]
     Indication: ASTHMA
     Route: 042
     Dates: start: 20091026, end: 20091221
  2. AMOXIL [Suspect]
     Dosage: 500MG THREE TIMES PER DAY
     Route: 048
     Dates: start: 20100111

REACTIONS (6)
  - ASTHMA [None]
  - COUGH [None]
  - DYSPNOEA [None]
  - PYREXIA [None]
  - RESPIRATORY TRACT INFECTION [None]
  - WHITE BLOOD CELL COUNT INCREASED [None]
